FAERS Safety Report 10301519 (Version 1)
Quarter: 2014Q3

REPORT INFORMATION
  Report Type: Report from Study
  Country: US (occurrence: US)
  Receive Date: 20140714
  Receipt Date: 20140714
  Transmission Date: 20150326
  Serious: Yes (Hospitalization)
  Sender: FDA-Public Use
  Company Number: US-009507513-1407USA004216

PATIENT
  Age: 39 Year
  Sex: Female
  Weight: 65 kg

DRUGS (6)
  1. VORINOSTAT [Suspect]
     Active Substance: VORINOSTAT
     Dosage: 500 MG, ON DAYS 1-3, INDUCTION AND RE-INDUCTION (CYCLE=28 DAYS)
     Route: 048
     Dates: start: 20140422, end: 20140425
  2. IDARUBICIN [Suspect]
     Active Substance: IDARUBICIN
     Dosage: 8 MG/M2/DAY, OVER 15 MINUTES, ON DAYS 4-6
     Route: 042
     Dates: start: 20140425, end: 20140426
  3. VORINOSTAT [Suspect]
     Active Substance: VORINOSTAT
     Indication: ACUTE MYELOID LEUKAEMIA
     Dosage: 500 MG, ON DAYS 1-3, INDUCTION AND RE-INDUCTION (CYCLE=28 DAYS)
     Route: 048
     Dates: start: 20140122, end: 20140124
  4. IDARUBICIN [Suspect]
     Active Substance: IDARUBICIN
     Indication: ACUTE MYELOID LEUKAEMIA
     Dosage: 12 MG/M2/DAY, OVER 15 MINUTES, ON DAYS 4-6, INDUCTION AND RE-INDUCTION (CYCLE=28 DAYS)
     Route: 042
     Dates: start: 20140125, end: 20140127
  5. CYTARABINE. [Suspect]
     Active Substance: CYTARABINE
     Indication: ACUTE MYELOID LEUKAEMIA
     Dosage: 1500 MG/M2/DAY, CONTINOUS, ON DAYS 4-7,INDUCTION AND RE-INDUCTION (CYCLE=28 DAYS)
     Route: 042
     Dates: start: 20140125, end: 20140128
  6. CYTARABINE. [Suspect]
     Active Substance: CYTARABINE
     Dosage: 750 MG/M2/DAY, CONTINOUS, ON DAYS 4-6
     Route: 042
     Dates: start: 20140425, end: 20140428

REACTIONS (1)
  - Febrile neutropenia [Recovered/Resolved]

NARRATIVE: CASE EVENT DATE: 20140507
